FAERS Safety Report 17982993 (Version 2)
Quarter: 2020Q3

REPORT INFORMATION
  Report Type: Spontaneous
  Country: US (occurrence: US)
  Receive Date: 20200706
  Receipt Date: 20200714
  Transmission Date: 20201103
  Serious: No
  Sender: FDA-Public Use
  Company Number: US-PFIZER INC-2020254718

PATIENT
  Age: 82 Year
  Sex: Female
  Weight: 64.4 kg

DRUGS (1)
  1. EPINEPHRINE. [Suspect]
     Active Substance: EPINEPHRINE
     Indication: BLOOD PRESSURE DECREASED
     Dosage: UNK

REACTIONS (2)
  - Tachycardia [Unknown]
  - Therapeutic response unexpected [Unknown]
